FAERS Safety Report 7287683-6 (Version None)
Quarter: 2011Q1

REPORT INFORMATION
  Report Type: 
  Country: None (occurrence: None)
  Receive Date: 20110211
  Receipt Date: 20110131
  Transmission Date: 20110831
  Serious: Yes (Other)
  Sender: FDA-Public Use
  Company Number: US-ELI_LILLY_AND_COMPANY-US201101000641

PATIENT
  Sex: Female

DRUGS (9)
  1. FORTEO [Suspect]
     Dosage: 20 UG, DAILY (1/D)
     Dates: end: 20110128
  2. CALCIUM [Concomitant]
  3. METOPROLOL [Concomitant]
  4. ANAPRIL [Concomitant]
  5. LOVAZA [Concomitant]
  6. ASPIRIN [Concomitant]
  7. FORTEO [Suspect]
     Indication: OSTEOPOROSIS
     Dosage: 20 UG, DAILY (1/D)
  8. LEVOTHYROXINE SODIUM [Concomitant]
  9. MULTI-VITAMIN [Concomitant]

REACTIONS (4)
  - LUNG NEOPLASM MALIGNANT [None]
  - INFLUENZA [None]
  - LABORATORY TEST ABNORMAL [None]
  - BONE NEOPLASM MALIGNANT [None]
